FAERS Safety Report 6854831-9 (Version None)
Quarter: 2010Q3

REPORT INFORMATION
  Report Type: 
  Country: None (occurrence: None)
  Receive Date: 20100717
  Receipt Date: 20080222
  Transmission Date: 20110219
  Serious: No
  Sender: FDA-Public Use
  Company Number: US-PFIZER INC-2007105391

PATIENT
  Sex: Female
  Weight: 61.2 kg

DRUGS (8)
  1. CHANTIX [Suspect]
     Indication: SMOKING CESSATION THERAPY
     Route: 048
     Dates: start: 20071202
  2. ANASTROZOLE [Concomitant]
  3. ACETYLSALICYLIC ACID [Concomitant]
  4. FOSAMAX [Concomitant]
  5. CALTRATE [Concomitant]
  6. VITAMIN D [Concomitant]
  7. MINERALS NOS [Concomitant]
  8. ANASTROZOLE [Concomitant]

REACTIONS (5)
  - ABNORMAL DREAMS [None]
  - HEADACHE [None]
  - PAIN IN JAW [None]
  - SLEEP DISORDER [None]
  - VISION BLURRED [None]
